FAERS Safety Report 6600738-1 (Version None)
Quarter: 2010Q1

REPORT INFORMATION
  Report Type: 
  Country: None (occurrence: None)
  Receive Date: 20100223
  Receipt Date: 20100223
  Transmission Date: 20100710
  Serious: Yes (Disabling)
  Sender: FDA-Public Use
  Company Number: None

PATIENT
  Age: 60 Year
  Sex: Female
  Weight: 64.4108 kg

DRUGS (1)
  1. LEVAQUIN [Suspect]
     Indication: SINUSITIS
     Dosage: 1 TABLET ONCE A DAY PO
     Route: 048
     Dates: start: 20100208, end: 20100212

REACTIONS (4)
  - DYSSTASIA [None]
  - SWELLING [None]
  - TENDON RUPTURE [None]
  - TENDONITIS [None]
